FAERS Safety Report 17409392 (Version 3)
Quarter: 2021Q4

REPORT INFORMATION
  Report Type: Spontaneous
  Country: CH (occurrence: CH)
  Receive Date: 20200212
  Receipt Date: 20211119
  Transmission Date: 20220303
  Serious: Yes (Hospitalization, Other)
  Sender: FDA-Public Use
  Company Number: CH-SM-2020-10526

PATIENT
  Age: 38 Year
  Sex: Male

DRUGS (18)
  1. RISPERDAL CONSTA [Suspect]
     Active Substance: RISPERIDONE
     Indication: Product used for unknown indication
     Route: 030
     Dates: end: 20191210
  2. RISPERDAL CONSTA [Suspect]
     Active Substance: RISPERIDONE
     Route: 065
  3. RISPERDAL CONSTA [Suspect]
     Active Substance: RISPERIDONE
     Route: 065
  4. RISPERDAL CONSTA [Suspect]
     Active Substance: RISPERIDONE
  5. VALPROATE SODIUM [Suspect]
     Active Substance: VALPROATE SODIUM
     Indication: Product used for unknown indication
     Dosage: THERAPY START DATE: 29/JAN/2020
     Route: 065
  6. VALPROATE SODIUM [Suspect]
     Active Substance: VALPROATE SODIUM
     Dosage: THERAPY START DATE: 15/JAN/2020
     Route: 065
     Dates: end: 20200129
  7. VALPROATE SODIUM [Suspect]
     Active Substance: VALPROATE SODIUM
     Dosage: THERAPY START DATE: 10/DEC/2019
     Route: 065
     Dates: end: 20191216
  8. VALPROATE SODIUM [Suspect]
     Active Substance: VALPROATE SODIUM
     Dosage: THERAPY START DATE: 16/DEC/2019
     Route: 065
  9. VALPROATE SODIUM [Suspect]
     Active Substance: VALPROATE SODIUM
     Dosage: THERAPY START DATE: 02/JAN/2020
     Route: 065
     Dates: end: 20200109
  10. VALPROATE SODIUM [Suspect]
     Active Substance: VALPROATE SODIUM
     Dosage: THERAPY START DATE: 09/JAN/2020
     Route: 065
     Dates: end: 20200115
  11. VALPROATE SODIUM [Suspect]
     Active Substance: VALPROATE SODIUM
     Dosage: THERAPY START DATE: 03/DEC/2019
     Route: 065
     Dates: end: 20191210
  12. VALPROATE SODIUM [Suspect]
     Active Substance: VALPROATE SODIUM
     Route: 065
  13. LAMICTAL [Suspect]
     Active Substance: LAMOTRIGINE
     Indication: Product used for unknown indication
     Dosage: THERAPY START DATE: 03/DEC/2019
     Route: 065
     Dates: end: 20200117
  14. LEVOMEPROMAZINE [Suspect]
     Active Substance: LEVOMEPROMAZINE
     Indication: Product used for unknown indication
     Dosage: THERAPY START DATE: 16/NOV/2020
     Route: 065
  15. PRAZINE (PROMAZINE HYDROCHLORIDE) [Suspect]
     Active Substance: PROMAZINE HYDROCHLORIDE
     Indication: Product used for unknown indication
     Dosage: THERAPY START DATE: 16/JAN/2020
     Route: 065
  16. AMLODIPINE [Concomitant]
     Active Substance: AMLODIPINE BESYLATE
     Indication: Hypertension
  17. VALPROATE SODIUM [Concomitant]
     Active Substance: VALPROATE SODIUM
     Route: 065
     Dates: end: 20191203
  18. VALPROATE SODIUM [Concomitant]
     Active Substance: VALPROATE SODIUM
     Route: 065
     Dates: start: 20191203

REACTIONS (10)
  - Petit mal epilepsy [Not Recovered/Not Resolved]
  - Antipsychotic drug level above therapeutic [Recovered/Resolved]
  - Withdrawal syndrome [Recovered/Resolved]
  - Chorea [Recovered/Resolved]
  - Abnormal behaviour [Recovered/Resolved]
  - Extrapyramidal disorder [Recovered/Resolved]
  - Muscle spasms [Recovered/Resolved]
  - Off label use [Unknown]
  - Incorrect dose administered [Unknown]
  - Inappropriate schedule of product administration [Unknown]

NARRATIVE: CASE EVENT DATE: 20191101
